FAERS Safety Report 6030636-6 (Version None)
Quarter: 2008Q4

REPORT INFORMATION
  Report Type: 
  Country: None (occurrence: None)
  Receive Date: 20081222
  Receipt Date: 20080911
  Transmission Date: 20090506
  Serious: No
  Sender: FDA-Public Use
  Company Number: US-WYE-H05964008

PATIENT
  Age: 55 Year
  Sex: Female
  Weight: 74.91 kg

DRUGS (6)
  1. PRISTIQ [Suspect]
     Indication: DEPRESSION
     Dosage: 50 MG 1X PER 1 DAY, ORAL
     Route: 048
     Dates: start: 20080901
  2. PAXIL [Suspect]
     Dosage: 80 MG,
     Dates: end: 20080901
  3. PERCOCET [Concomitant]
  4. XANAX [Concomitant]
  5. GABAPENTIN [Concomitant]
  6. PRILOSEC [Concomitant]

REACTIONS (6)
  - DISTURBANCE IN ATTENTION [None]
  - FORMICATION [None]
  - INSOMNIA [None]
  - LIP SWELLING [None]
  - OEDEMA PERIPHERAL [None]
  - TREMOR [None]
